FAERS Safety Report 7386157-1 (Version None)
Quarter: 2011Q1

REPORT INFORMATION
  Report Type: 
  Country: None (occurrence: None)
  Receive Date: 20110331
  Receipt Date: 20110110
  Transmission Date: 20110831
  Serious: Yes (Hospitalization, Other)
  Sender: FDA-Public Use
  Company Number: DK-PFIZER INC-2010147715

PATIENT
  Sex: Female

DRUGS (1)
  1. ETODOLAC [Suspect]
     Indication: OSTEOARTHRITIS
     Dosage: 300 MG, 2X/DAY
     Route: 048
     Dates: start: 20081221

REACTIONS (1)
  - CARDIAC DISORDER [None]
